FAERS Safety Report 9032503 (Version 1)
Quarter: 2013Q1

REPORT INFORMATION
  Report Type: Spontaneous
  Country: SE (occurrence: JP)
  Receive Date: 20130125
  Receipt Date: 20130125
  Transmission Date: 20140127
  Serious: Yes (Hospitalization, Other)
  Sender: FDA-Public Use
  Company Number: JP-PFIZER INC-2013013037

PATIENT
  Age: 6 Year
  Sex: Male
  Weight: 13 kg

DRUGS (6)
  1. HALOPERIDOL [Suspect]
     Indication: CHOREOATHETOSIS
     Dosage: 0.3 MG, DAILY
     Route: 048
  2. HALOPERIDOL [Suspect]
     Dosage: 0.8 MG, 2X/DAY
  3. CLONAZEPAM [Concomitant]
     Indication: CHOREOATHETOSIS
     Dosage: 2.6 MG, DAILY
  4. DIAZEPAM [Concomitant]
     Indication: CHOREOATHETOSIS
     Dosage: 50 MG, DAILY
  5. PHENOBARBITAL [Concomitant]
     Indication: CHOREOATHETOSIS
     Dosage: 50 MG, DAILY
  6. BIPERIDEN [Concomitant]
     Dosage: 0.3 MG, DAILY
     Route: 048

REACTIONS (1)
  - Rhabdomyolysis [Recovered/Resolved]
